FAERS Safety Report 17776447 (Version 1)
Quarter: 2020Q2

REPORT INFORMATION
  Report Type: Spontaneous
  Country: US (occurrence: US)
  Receive Date: 20200513
  Receipt Date: 20200513
  Transmission Date: 20200714
  Serious: No
  Sender: FDA-Public Use
  Company Number: None

PATIENT
  Age: 80 Year
  Sex: Female

DRUGS (1)
  1. DILTIAZEM HYDROCHLORIDE EXTENDED-RELEASE CAPSULE [Suspect]
     Active Substance: DILTIAZEM HYDROCHLORIDE

REACTIONS (4)
  - Product taste abnormal [None]
  - Product odour abnormal [None]
  - Abdominal discomfort [None]
  - Oral discomfort [None]

NARRATIVE: CASE EVENT DATE: 20200506
